FAERS Safety Report 9943451 (Version 4)
Quarter: 2014Q2

REPORT INFORMATION
  Report Type: Spontaneous
  Country: GB (occurrence: GB)
  Receive Date: 20140303
  Receipt Date: 20140414
  Transmission Date: 20141212
  Serious: Yes (Disabling, Other)
  Sender: FDA-Public Use
  Company Number: PHFR2013GB005369

PATIENT
  Sex: Female

DRUGS (7)
  1. CLOZARIL [Suspect]
     Indication: SCHIZOPHRENIA
     Dosage: UNK
     Route: 048
     Dates: start: 20080814
  2. CLOZARIL [Suspect]
     Indication: PSYCHOTIC DISORDER
     Dosage: 600 MG, UNK
     Route: 048
  3. CLOZARIL [Suspect]
     Dosage: 500 MG, DAILY
     Route: 048
  4. METPROLOL [Concomitant]
     Indication: TACHYCARDIA
     Dosage: 50 MG, BID
  5. PRO-BANTHINE [Concomitant]
     Indication: SALIVARY HYPERSECRETION
     Dosage: 15 MG, DAILY
     Dates: start: 201311
  6. LAMOTRIGINE [Concomitant]
     Indication: AFFECTIVE DISORDER
     Dosage: 200 ML, UNK
  7. AMISULPRIDE [Concomitant]
     Indication: PSYCHOTIC DISORDER
     Dosage: 50 UG, UNK

REACTIONS (6)
  - Gastrointestinal disorder [Not Recovered/Not Resolved]
  - Constipation [Not Recovered/Not Resolved]
  - Brain injury [Unknown]
  - Psychotic disorder [Unknown]
  - Antipsychotic drug level increased [Not Recovered/Not Resolved]
  - Tachycardia [Recovering/Resolving]
